FAERS Safety Report 9721854 (Version 2)
Quarter: 2013Q4

REPORT INFORMATION
  Report Type: Spontaneous
  Country: MY (occurrence: MY)
  Receive Date: 20131201
  Receipt Date: 20131206
  Transmission Date: 20140711
  Serious: Yes (Death)
  Sender: FDA-Public Use
  Company Number: MY-TAKEDA-2013TJP003224

PATIENT
  Age: 63 Year
  Sex: Male

DRUGS (3)
  1. TACHOSIL [Suspect]
     Indication: WOUND TREATMENT
     Dosage: 2 MEDICATED SPONGE
     Dates: start: 20131120, end: 20131120
  2. LOW-MOLECULAR HEPARIN [Concomitant]
     Indication: SPLENIC VEIN THROMBOSIS
     Dosage: UNK
     Dates: end: 20131118
  3. ALL OTHER THERAPEUTIC PRODUCTS [Concomitant]

REACTIONS (1)
  - Death [Fatal]
